FAERS Safety Report 11353211 (Version 1)
Quarter: 2015Q3

REPORT INFORMATION
  Report Type: Spontaneous
  Country: US (occurrence: US)
  Receive Date: 20150807
  Receipt Date: 20150807
  Transmission Date: 20151125
  Serious: No
  Sender: FDA-Public Use
  Company Number: US-JNJFOC-20140301463

PATIENT
  Age: 63 Year
  Sex: Female
  Weight: 72.58 kg

DRUGS (8)
  1. HERBALIFE [Concomitant]
     Indication: ROUTINE HEALTH MAINTENANCE
     Dosage: 2X DAILY
     Route: 065
  2. WOMENS ROGAINE [Suspect]
     Active Substance: MINOXIDIL
     Indication: HAIR GROWTH ABNORMAL
     Dosage: 2 DROPPERFULS
     Route: 061
  3. CO-Q10 [Concomitant]
     Indication: ROUTINE HEALTH MAINTENANCE
     Dosage: 1 TIME DAILY
     Route: 065
  4. GINKGO BILOBA [Concomitant]
     Active Substance: GINKGO
     Indication: ROUTINE HEALTH MAINTENANCE
     Dosage: 1 TIME DAILY
     Route: 065
  5. SPIRULINA [Concomitant]
     Active Substance: SPIRULINA
     Indication: ROUTINE HEALTH MAINTENANCE
     Dosage: 1X DAILY
     Route: 065
  6. WOMENS ROGAINE [Suspect]
     Active Substance: MINOXIDIL
     Route: 061
  7. VITAMIN D [Concomitant]
     Active Substance: CHOLECALCIFEROL
     Indication: ROUTINE HEALTH MAINTENANCE
     Dosage: 1X DAILY
     Route: 065
  8. VITAMIN C [Concomitant]
     Active Substance: ASCORBIC ACID
     Indication: ROUTINE HEALTH MAINTENANCE
     Dosage: 1X DAILY
     Route: 065

REACTIONS (3)
  - Scab [Recovering/Resolving]
  - Precancerous cells present [Unknown]
  - Pruritus [Recovering/Resolving]
